FAERS Safety Report 16660669 (Version 1)
Quarter: 2019Q3

REPORT INFORMATION
  Report Type: Spontaneous
  Country: US (occurrence: US)
  Receive Date: 20190802
  Receipt Date: 20190802
  Transmission Date: 20191004
  Serious: No
  Sender: FDA-Public Use
  Company Number: US-JNJFOC-20190800700

PATIENT
  Age: 42 Year
  Sex: Male

DRUGS (1)
  1. STELARA [Suspect]
     Active Substance: USTEKINUMAB
     Indication: PSORIATIC ARTHROPATHY
     Route: 058
     Dates: start: 20190311

REACTIONS (2)
  - Product dose omission [Not Recovered/Not Resolved]
  - Self-medication [Unknown]

NARRATIVE: CASE EVENT DATE: 20190726
